FAERS Safety Report 11696376 (Version 2)
Quarter: 2015Q4

REPORT INFORMATION
  Report Type: Spontaneous
  Country: GB (occurrence: GB)
  Receive Date: 20151104
  Receipt Date: 20151119
  Transmission Date: 20160304
  Serious: Yes (Hospitalization)
  Sender: FDA-Public Use
  Company Number: GB-PFIZER INC-2015280014

PATIENT
  Age: 49 Year
  Sex: Male

DRUGS (2)
  1. BETMIGA [Concomitant]
     Active Substance: MIRABEGRON
     Indication: INCONTINENCE
     Dosage: UNK
     Dates: start: 201504
  2. VIAGRA [Suspect]
     Active Substance: SILDENAFIL CITRATE
     Dosage: 100MG 1 TO BE TAKEN, AS REQUIRED
     Dates: start: 2010, end: 2015

REACTIONS (8)
  - Therapeutic response unexpected [Unknown]
  - Product quality issue [Unknown]
  - Drug ineffective [Unknown]
  - Stress [Not Recovered/Not Resolved]
  - Neck pain [Recovered/Resolved]
  - Drug effect prolonged [Unknown]
  - Hot flush [Unknown]
  - Cyanopsia [Unknown]

NARRATIVE: CASE EVENT DATE: 201504
